FAERS Safety Report 8978065 (Version 1)
Quarter: 2012Q4

REPORT INFORMATION
  Report Type: 
  Country: US (occurrence: US)
  Receive Date: 20121221
  Receipt Date: 20121221
  Transmission Date: 20130627
  Serious: Yes (Other)
  Sender: FDA-Public Use
  Company Number: US-JNJFOC-20121205868

PATIENT
  Sex: Female
  Weight: 58.51 kg

DRUGS (5)
  1. TOPAMAX [Suspect]
     Indication: MIGRAINE PROPHYLAXIS
     Route: 048
     Dates: start: 2006
  2. TRILEPTAL [Suspect]
     Indication: EAR PAIN
     Route: 065
     Dates: start: 20120910
  3. TRILEPTAL [Suspect]
     Indication: EAR PAIN
     Route: 065
     Dates: start: 2012
  4. LYRICA [Suspect]
     Indication: EAR PAIN
     Dosage: At night
     Route: 065
     Dates: start: 2010
  5. EFFEXOR [Suspect]
     Indication: DEPRESSION
     Route: 065

REACTIONS (5)
  - Trigeminal neuralgia [Unknown]
  - Migraine [Unknown]
  - Dizziness [Not Recovered/Not Resolved]
  - Mental impairment [Unknown]
  - Treatment noncompliance [Unknown]
